FAERS Safety Report 8334368-0 (Version None)
Quarter: 2012Q2

REPORT INFORMATION
  Report Type: 
  Country: None (occurrence: None)
  Receive Date: 20120503
  Receipt Date: 20120427
  Transmission Date: 20120825
  Serious: Yes (Other)
  Sender: FDA-Public Use
  Company Number: US-BAYER-2012-042049

PATIENT
  Age: 84 Year
  Sex: Female

DRUGS (2)
  1. ASPIRIN [Suspect]
     Indication: ISCHAEMIC HEART DISEASE PROPHYLAXIS
     Dosage: UNK
     Route: 048
     Dates: start: 20050101
  2. ACTONEL [Concomitant]

REACTIONS (3)
  - DEAFNESS BILATERAL [None]
  - FAECES DISCOLOURED [None]
  - TINNITUS [None]
